FAERS Safety Report 7002016-8 (Version None)
Quarter: 2010Q3

REPORT INFORMATION
  Report Type: 
  Country: None (occurrence: None)
  Receive Date: 20100920
  Receipt Date: 20100917
  Transmission Date: 20110219
  Serious: Yes (Other)
  Sender: FDA-Public Use
  Company Number: D0068702A

PATIENT
  Sex: Female
  Weight: 16 kg

DRUGS (3)
  1. ZOFRAN [Suspect]
     Indication: NAUSEA
     Dosage: 2MG PER DAY
     Route: 042
     Dates: start: 20100727
  2. VOMEX [Concomitant]
     Indication: NAUSEA
     Route: 054
  3. NAROPIN [Concomitant]
     Indication: PAIN
     Route: 042

REACTIONS (15)
  - ABNORMAL SENSATION IN EYE [None]
  - BLINDNESS [None]
  - CRYING [None]
  - EYE DISORDER [None]
  - EYE IRRITATION [None]
  - EYE PAIN [None]
  - EYE SWELLING [None]
  - EYELID OEDEMA [None]
  - GAZE PALSY [None]
  - HEADACHE [None]
  - LACRIMATION INCREASED [None]
  - PANIC REACTION [None]
  - PHOTOPHOBIA [None]
  - VISION BLURRED [None]
  - VISUAL ACUITY REDUCED [None]
